FAERS Safety Report 6317270-5 (Version None)
Quarter: 2009Q3

REPORT INFORMATION
  Report Type: 
  Country: None (occurrence: None)
  Receive Date: 20090819
  Receipt Date: 20090806
  Transmission Date: 20100115
  Serious: Yes (Disabling)
  Sender: FDA-Public Use
  Company Number: PAR_02888_2009

PATIENT
  Sex: Female

DRUGS (13)
  1. DOXYCYCLINE [Suspect]
     Indication: DRUG USE FOR UNKNOWN INDICATION
     Dosage: DF
     Dates: start: 20090217, end: 20090201
  2. PEGASYS [Suspect]
     Indication: HEPATITIS C
     Dosage: 180 UG 1X/WEEK SUBCUTANEOUS
     Route: 058
     Dates: start: 20081006
  3. RIBAVIRIN [Suspect]
     Indication: HEPATITIS C
     Dosage: 1000MG
     Dates: start: 20081006
  4. SEROQUEL [Suspect]
     Indication: DEPRESSION
     Dosage: 300 MG
     Dates: start: 20090704, end: 20090701
  5. SEROQUEL [Suspect]
     Indication: DEPRESSION
     Dosage: 50 MG
     Dates: start: 20090701
  6. METOPROLOL [Concomitant]
  7. AKARIN [Concomitant]
  8. KLONOPIN [Concomitant]
  9. APPETITE STIMULANTS [Concomitant]
  10. VALTREX [Concomitant]
  11. LEVOTHYROXINE [Concomitant]
  12. UNSPECIFIED MEDICATION FOR ITCHING [Concomitant]
  13. COMBIVENT [Concomitant]

REACTIONS (16)
  - ANXIETY [None]
  - BURNING SENSATION [None]
  - COUGH [None]
  - DECREASED APPETITE [None]
  - DYSGEUSIA [None]
  - DYSPNOEA [None]
  - FEELING DRUNK [None]
  - HYPOAESTHESIA [None]
  - IMPAIRED DRIVING ABILITY [None]
  - MALAISE [None]
  - PHOTOPHOBIA [None]
  - PYREXIA [None]
  - RASH GENERALISED [None]
  - THYROXINE INCREASED [None]
  - VISUAL ACUITY REDUCED [None]
  - WHITE BLOOD CELL COUNT DECREASED [None]
